FAERS Safety Report 5753973-9 (Version None)
Quarter: 2008Q2

REPORT INFORMATION
  Report Type: 
  Country: None (occurrence: None)
  Receive Date: 20080527
  Receipt Date: 20080527
  Transmission Date: 20081010
  Serious: Yes (Other)
  Sender: FDA-Public Use
  Company Number: None

PATIENT
  Age: 52 Month
  Sex: Male
  Weight: 81.6475 kg

DRUGS (1)
  1. ROPINIROLE HYDROCHLORIDE [Suspect]
     Dosage: 1.5MG       DAILY   PO
     Route: 048
     Dates: start: 20080525, end: 20080525

REACTIONS (4)
  - CONFUSIONAL STATE [None]
  - FATIGUE [None]
  - HYPERHIDROSIS [None]
  - NAUSEA [None]
